FAERS Safety Report 4391612-2 (Version None)
Quarter: 2004Q3

REPORT INFORMATION
  Report Type: 
  Country: None (occurrence: None)
  Receive Date: 20040702
  Receipt Date: 20040426
  Transmission Date: 20050211
  Serious: Yes (Other)
  Sender: FDA-Public Use
  Company Number: 2004UW08391

PATIENT
  Age: 52 Year
  Sex: Female
  Weight: 77.1115 kg

DRUGS (7)
  1. CRESTOR [Suspect]
     Indication: HYPERCHOLESTEROLAEMIA
     Dosage: 10 MG QD PO
     Route: 048
     Dates: start: 20040421
  2. PRILOSEC [Concomitant]
  3. DIOVAN [Concomitant]
  4. TRAZODONE HCL [Concomitant]
  5. MULTI-VITAMINS [Concomitant]
  6. FLAXSEED OIL [Concomitant]
  7. VITAMIN E [Concomitant]

REACTIONS (2)
  - MYALGIA [None]
  - SENSATION OF HEAVINESS [None]
